FAERS Safety Report 10305824 (Version 1)
Quarter: 2014Q3

REPORT INFORMATION
  Report Type: Spontaneous
  Country: US (occurrence: None)
  Receive Date: 20140711
  Receipt Date: 20140711
  Transmission Date: 20150326
  Serious: Yes (Disabling, Other)
  Sender: FDA-Public Use
  Company Number: None

PATIENT
  Age: 25 Year
  Sex: Female
  Weight: 71.67 kg

DRUGS (1)
  1. MICONAZOLE NITRATE. [Suspect]
     Active Substance: MICONAZOLE NITRATE
     Indication: FUNGAL INFECTION
     Route: 067
     Dates: start: 20140710

REACTIONS (4)
  - Burning sensation [None]
  - Pain [None]
  - Pruritus [None]
  - Crying [None]

NARRATIVE: CASE EVENT DATE: 20140710
